FAERS Safety Report 5392365-1 (Version None)
Quarter: 2007Q3

REPORT INFORMATION
  Report Type: 
  Country: None (occurrence: None)
  Receive Date: 20070720
  Receipt Date: 20070713
  Transmission Date: 20080115
  Serious: Yes (Other)
  Sender: FDA-Public Use
  Company Number: A0654606A

PATIENT
  Age: 48 Year
  Sex: Male

DRUGS (6)
  1. AVANDIA [Suspect]
     Route: 048
     Dates: start: 19990901, end: 20070524
  2. METFORMIN HCL [Concomitant]
  3. GLYBURIDE [Concomitant]
  4. DIOVAN [Concomitant]
  5. LANTUS [Concomitant]
     Dates: start: 20011201
  6. UNSPECIFIED MEDICATION [Concomitant]

REACTIONS (8)
  - ASTHMA [None]
  - CARDIAC FAILURE CONGESTIVE [None]
  - DYSPNOEA [None]
  - DYSPNOEA EXERTIONAL [None]
  - FLUID RETENTION [None]
  - OEDEMA PERIPHERAL [None]
  - ORTHOPNOEA [None]
  - WEIGHT INCREASED [None]
